FAERS Safety Report 8384431-3 (Version None)
Quarter: 2012Q2

REPORT INFORMATION
  Report Type: 
  Country: None (occurrence: None)
  Receive Date: 20120524
  Receipt Date: 20120510
  Transmission Date: 20120825
  Serious: Yes (Hospitalization)
  Sender: FDA-Public Use
  Company Number: AR-GLAXOSMITHKLINE-A0977896A

PATIENT
  Age: 73 Year
  Sex: Male

DRUGS (8)
  1. ATENIX [Concomitant]
     Dosage: .5TAB PER DAY
  2. MELATONIN [Concomitant]
     Dosage: 1TAB PER DAY
  3. VOTRIENT [Suspect]
     Indication: RENAL CANCER
     Dosage: 400MG PER DAY
     Route: 048
     Dates: start: 20120301
  4. UNKNOWN MEDICATION [Concomitant]
     Dosage: 1TAB PER DAY
  5. NEBIVOLOL HCL [Concomitant]
     Indication: HYPERTENSION
     Dosage: 2TAB PER DAY
     Dates: end: 20120501
  6. CLOPIDOGREL [Concomitant]
  7. OMEPRAZOLE [Concomitant]
  8. ALPLAX [Concomitant]
     Dosage: 1TAB PER DAY

REACTIONS (2)
  - HYPERTENSION [None]
  - BLOOD SODIUM DECREASED [None]
